FAERS Safety Report 9831036 (Version 4)
Quarter: 2014Q1

REPORT INFORMATION
  Report Type: Spontaneous
  Country: DE (occurrence: DE)
  Receive Date: 20140120
  Receipt Date: 20140312
  Transmission Date: 20141002
  Serious: Yes (Other)
  Sender: FDA-Public Use
  Company Number: CHPA2014DE001012

PATIENT
  Age: 41 Year
  Sex: Female
  Weight: 76 kg

DRUGS (4)
  1. LAMISIL ONCE [Suspect]
     Indication: TINEA PEDIS
     Dosage: UNK UNK, ONCE/SINGLE
     Route: 061
     Dates: start: 201312, end: 201312
  2. LAMISIL ONCE [Suspect]
     Indication: BLISTER
  3. LAMISIL ONCE [Suspect]
     Indication: OFF LABEL USE
  4. LAMISIL [Suspect]
     Indication: TINEA PEDIS
     Dosage: UNK
     Route: 061

REACTIONS (7)
  - Blister [Recovered/Resolved]
  - Tinea pedis [Recovered/Resolved]
  - Condition aggravated [Recovered/Resolved]
  - Underdose [Unknown]
  - Wrong technique in drug usage process [Unknown]
  - Therapeutic response decreased [Unknown]
  - Drug ineffective [Unknown]
